FAERS Safety Report 20411087 (Version 2)
Quarter: 2022Q1

REPORT INFORMATION
  Report Type: Spontaneous
  Country: US (occurrence: US)
  Receive Date: 20220201
  Receipt Date: 20220329
  Transmission Date: 20220424
  Serious: No
  Sender: FDA-Public Use
  Company Number: US-SA-SAC20220127000243

PATIENT
  Age: 86 Year
  Sex: Female

DRUGS (2)
  1. CEREZYME [Suspect]
     Active Substance: IMIGLUCERASE
     Dosage: UNK UNK, Q3W
     Route: 041
     Dates: start: 20020101, end: 20211215
  2. CEREZYME [Suspect]
     Active Substance: IMIGLUCERASE
     Dosage: UNK, Q3W

REACTIONS (4)
  - Infusion site erythema [Unknown]
  - Drug hypersensitivity [Unknown]
  - Adverse drug reaction [Unknown]
  - Inappropriate schedule of product administration [Unknown]

NARRATIVE: CASE EVENT DATE: 20211201
